FAERS Safety Report 7211922-0 (Version None)
Quarter: 2011Q1

REPORT INFORMATION
  Report Type: 
  Country: None (occurrence: None)
  Receive Date: 20110106
  Receipt Date: 20101222
  Transmission Date: 20110831
  Serious: No
  Sender: FDA-Public Use
  Company Number: US-BIOGENIDEC-2011BI000066

PATIENT
  Sex: Female

DRUGS (1)
  1. TYSABRI [Suspect]
     Indication: MULTIPLE SCLEROSIS
     Route: 042
     Dates: start: 20070202

REACTIONS (7)
  - HYPERHIDROSIS [None]
  - URINARY INCONTINENCE [None]
  - FAECAL INCONTINENCE [None]
  - STRESS [None]
  - FATIGUE [None]
  - COORDINATION ABNORMAL [None]
  - COGNITIVE DISORDER [None]
